FAERS Safety Report 7220419-3 (Version None)
Quarter: 2011Q1

REPORT INFORMATION
  Report Type: 
  Country: None (occurrence: None)
  Receive Date: 20110111
  Receipt Date: 20110106
  Transmission Date: 20110831
  Serious: Yes (Hospitalization, Other)
  Sender: FDA-Public Use
  Company Number: CA-ABBOTT-10P-028-0690249-00

PATIENT
  Sex: Male
  Weight: 90.8 kg

DRUGS (5)
  1. ATACAND [Concomitant]
     Indication: HYPERTENSION
     Route: 048
     Dates: start: 20070101
  2. ACEBUTOLOL [Concomitant]
     Indication: CARDIAC DISORDER
     Route: 048
     Dates: start: 19900101
  3. HUMIRA [Suspect]
     Indication: PSORIASIS
     Route: 058
     Dates: start: 20100601
  4. CRESTOR [Concomitant]
     Indication: BLOOD CHOLESTEROL INCREASED
     Route: 048
     Dates: start: 20101110
  5. RAMAMLODIPINE [Concomitant]
     Indication: HYPERTENSION
     Route: 048
     Dates: start: 20070101

REACTIONS (3)
  - POSTOPERATIVE ADHESION [None]
  - INTESTINAL OBSTRUCTION [None]
  - PSORIASIS [None]
